FAERS Safety Report 14351313 (Version 1)
Quarter: 2018Q1

REPORT INFORMATION
  Report Type: Spontaneous
  Country: US (occurrence: US)
  Receive Date: 20180104
  Receipt Date: 20180104
  Transmission Date: 20180509
  Serious: Yes (Hospitalization, Other)
  Sender: FDA-Public Use
  Company Number: US-BRISTOL-MYERS SQUIBB COMPANY-BMS-2017-118723

PATIENT
  Sex: Male
  Weight: 81.63 kg

DRUGS (3)
  1. ELIQUIS [Suspect]
     Active Substance: APIXABAN
     Indication: CEREBROVASCULAR ACCIDENT PROPHYLAXIS
     Dosage: 5 MG, BID
     Route: 048
     Dates: start: 201608
  2. CIPRO [Suspect]
     Active Substance: CIPROFLOXACIN HYDROCHLORIDE
     Indication: INFLUENZA
     Route: 065
  3. CIPRO [Suspect]
     Active Substance: CIPROFLOXACIN HYDROCHLORIDE
     Indication: NASOPHARYNGITIS
     Route: 065

REACTIONS (7)
  - Faeces discoloured [Unknown]
  - Haemorrhage [Unknown]
  - Body height decreased [Unknown]
  - Nasopharyngitis [Unknown]
  - Haemoglobin decreased [Unknown]
  - Haematochezia [Unknown]
  - Influenza [Unknown]
